FAERS Safety Report 21892280 (Version 1)
Quarter: 2023Q1

REPORT INFORMATION
  Report Type: Spontaneous
  Country: DE (occurrence: DE)
  Receive Date: 20230120
  Receipt Date: 20230120
  Transmission Date: 20230418
  Serious: No
  Sender: FDA-Public Use
  Company Number: DE-JAZZ-2022-DE-035558

PATIENT
  Age: 54 Year
  Sex: Male

DRUGS (6)
  1. XYREM [Suspect]
     Active Substance: SODIUM OXYBATE
     Indication: Wernicke^s encephalopathy
     Dosage: 4.5 GRAM
  2. DALFAMPRIDINE [Suspect]
     Active Substance: DALFAMPRIDINE
     Indication: Wernicke^s encephalopathy
     Dosage: UNK, BID
  3. ZONISAMIDE [Suspect]
     Active Substance: ZONISAMIDE
     Indication: Wernicke^s encephalopathy
     Dosage: UNK
  4. .GAMMA.-AMINOBUTYRIC ACID [Suspect]
     Active Substance: .GAMMA.-AMINOBUTYRIC ACID
     Indication: Wernicke^s encephalopathy
     Dosage: UNK
  5. BACLOFEN [Suspect]
     Active Substance: BACLOFEN
     Indication: Wernicke^s encephalopathy
     Dosage: 3 ? 10 MG/D
  6. CLONAZEPAM [Suspect]
     Active Substance: CLONAZEPAM
     Indication: Wernicke^s encephalopathy
     Dosage: 2 ? 0.5 MG/D

REACTIONS (1)
  - Off label use [Unknown]
